FAERS Safety Report 8321306-X (Version None)
Quarter: 2012Q2

REPORT INFORMATION
  Report Type: 
  Country: None (occurrence: None)
  Receive Date: 20120430
  Receipt Date: 20120424
  Transmission Date: 20120825
  Serious: Yes (Hospitalization)
  Sender: FDA-Public Use
  Company Number: US-SANOFI-AVENTIS-2012SA028929

PATIENT

DRUGS (2)
  1. MULTAQ [Suspect]
     Route: 048
     Dates: end: 20120101
  2. VICODIN [Suspect]
     Route: 065

REACTIONS (3)
  - DEHYDRATION [None]
  - RENAL FAILURE [None]
  - MENTAL STATUS CHANGES [None]
